FAERS Safety Report 17875654 (Version 1)
Quarter: 2020Q2

REPORT INFORMATION
  Report Type: Spontaneous
  Country: US (occurrence: US)
  Receive Date: 20200609
  Receipt Date: 20200609
  Transmission Date: 20200714
  Serious: Yes (Other)
  Sender: FDA-Public Use
  Company Number: None

PATIENT
  Age: 57 Year
  Sex: Female
  Weight: 67.5 kg

DRUGS (2)
  1. HTZ 25MG [Concomitant]
  2. NP THYROID [Suspect]
     Active Substance: LEVOTHYROXINE\LIOTHYRONINE
     Indication: HYPOTHYROIDISM
     Dosage: ?          QUANTITY:1 TABLET(S);?
     Route: 048
     Dates: start: 20180906, end: 20200201

REACTIONS (6)
  - Arrhythmia [None]
  - Chest pain [None]
  - Fatigue [None]
  - Hypertension [None]
  - Temperature intolerance [None]
  - Palpitations [None]
